FAERS Safety Report 5305422-2 (Version None)
Quarter: 2007Q2

REPORT INFORMATION
  Report Type: 
  Country: None (occurrence: None)
  Receive Date: 20070416
  Receipt Date: 20070330
  Transmission Date: 20071010
  Serious: Yes (Life-Threatening, Hospitalization)
  Sender: FDA-Public Use
  Company Number: DSA_29573_2007

PATIENT
  Age: 48 Year
  Sex: Female

DRUGS (3)
  1. LORAZEPAM [Suspect]
     Dosage: 10 MG ONCE PO
     Route: 048
     Dates: start: 20070312, end: 20070312
  2. PARACETAMOL [Suspect]
     Dosage: 4000 MG ONCE PO
     Route: 048
     Dates: start: 20070312, end: 20070312
  3. VENLAFAXINE HCL [Suspect]
     Dosage: 375 MG ONCE PO
     Route: 048
     Dates: start: 20070312, end: 20070312

REACTIONS (5)
  - FATIGUE [None]
  - MULTIPLE DRUG OVERDOSE INTENTIONAL [None]
  - MYDRIASIS [None]
  - SOMNOLENCE [None]
  - SUICIDE ATTEMPT [None]
